FAERS Safety Report 7263954-4 (Version None)
Quarter: 2011Q1

REPORT INFORMATION
  Report Type: 
  Country: None (occurrence: None)
  Receive Date: 20110120
  Receipt Date: 20110110
  Transmission Date: 20110831
  Serious: Yes (Other)
  Sender: FDA-Public Use
  Company Number: 023469

PATIENT
  Sex: Female
  Weight: 80 kg

DRUGS (4)
  1. CERTOLIZUMAB PEGOL [Suspect]
     Indication: CROHN'S DISEASE
     Dosage: (200 MG 1X/4 WEEKS SUBCUTANEOUS)
     Route: 058
     Dates: start: 20091010
  2. PENTASA [Concomitant]
  3. LISINOPRIL [Concomitant]
  4. VITAMIN D [Concomitant]

REACTIONS (6)
  - ENTEROCUTANEOUS FISTULA [None]
  - STRESS [None]
  - POST PROCEDURAL COMPLICATION [None]
  - FATIGUE [None]
  - ABDOMINAL PAIN [None]
  - FREQUENT BOWEL MOVEMENTS [None]
